FAERS Safety Report 5944989-8 (Version None)
Quarter: 2008Q4

REPORT INFORMATION
  Report Type: 
  Country: None (occurrence: None)
  Receive Date: 20081107
  Receipt Date: 20081106
  Transmission Date: 20090506
  Serious: Yes (Other)
  Sender: FDA-Public Use
  Company Number: FR-MERCK-0811FRA00009

PATIENT
  Age: 60 Year
  Sex: Male

DRUGS (2)
  1. PRIMAXIN [Suspect]
     Indication: EPIDIDYMITIS
     Route: 042
     Dates: start: 20081018, end: 20081021
  2. PRIMAXIN [Suspect]
     Route: 042
     Dates: start: 20081018, end: 20081021

REACTIONS (1)
  - THROMBOPHLEBITIS SUPERFICIAL [None]
